FAERS Safety Report 4706569-1 (Version None)
Quarter: 2005Q3

REPORT INFORMATION
  Report Type: 
  Country: None (occurrence: None)
  Receive Date: 20050705
  Receipt Date: 20050623
  Transmission Date: 20060218
  Serious: Yes (Other)
  Sender: FDA-Public Use
  Company Number: 2005SE03733

PATIENT
  Age: 6 Year
  Sex: Female

DRUGS (1)
  1. PROPOFOL-LIPURO [Suspect]

REACTIONS (2)
  - AIRWAY COMPLICATION OF ANAESTHESIA [None]
  - RASH [None]
